FAERS Safety Report 5496669-3 (Version None)
Quarter: 2007Q4

REPORT INFORMATION
  Report Type: 
  Country: None (occurrence: None)
  Receive Date: 20071023
  Receipt Date: 20071023
  Transmission Date: 20080405
  Serious: No
  Sender: FDA-Public Use
  Company Number: None

PATIENT
  Age: 61 Year
  Sex: Male
  Weight: 74.8435 kg

DRUGS (1)
  1. VIAGRA [Suspect]
     Dosage: ONCE  PO
     Route: 048
     Dates: start: 20050805, end: 20060805

REACTIONS (2)
  - DEAFNESS UNILATERAL [None]
  - SUDDEN HEARING LOSS [None]
